FAERS Safety Report 13992950 (Version 1)
Quarter: 2017Q3

REPORT INFORMATION
  Report Type: Report from Study
  Country: US (occurrence: US)
  Receive Date: 20170920
  Receipt Date: 20170920
  Transmission Date: 20171128
  Serious: Yes (Hospitalization)
  Sender: FDA-Public Use
  Company Number: US-JNJFOC-20151114170

PATIENT
  Age: 81 Year
  Sex: Female

DRUGS (7)
  1. DOXEPIN HYDROCHLORIDE. [Concomitant]
     Active Substance: DOXEPIN HYDROCHLORIDE
  2. VESICARE [Concomitant]
     Active Substance: SOLIFENACIN SUCCINATE
  3. IMBRUVICA [Suspect]
     Active Substance: IBRUTINIB
     Indication: CHRONIC LYMPHOCYTIC LEUKAEMIA
     Route: 048
     Dates: start: 20150924, end: 2017
  4. TOVIAZ [Concomitant]
     Active Substance: FESOTERODINE FUMARATE
  5. OMEPRAZOLE. [Concomitant]
     Active Substance: OMEPRAZOLE
  6. GABAPENTIN. [Concomitant]
     Active Substance: GABAPENTIN
  7. TIZANIDINE HCL [Concomitant]
     Active Substance: TIZANIDINE HYDROCHLORIDE

REACTIONS (11)
  - Dyspepsia [Unknown]
  - Therapeutic response unexpected [Not Recovered/Not Resolved]
  - Pain [Unknown]
  - Fall [Unknown]
  - Asthenia [Unknown]
  - Abdominal pain upper [Recovered/Resolved]
  - Diarrhoea [Recovered/Resolved]
  - Fibromyalgia [Unknown]
  - Nausea [Recovering/Resolving]
  - Flatulence [Recovered/Resolved]
  - Discomfort [Unknown]

NARRATIVE: CASE EVENT DATE: 2015
